FAERS Safety Report 10699236 (Version 1)
Quarter: 2015Q1

REPORT INFORMATION
  Report Type: Report from Study
  Country: US (occurrence: US)
  Receive Date: 20150108
  Receipt Date: 20150108
  Transmission Date: 20150721
  Serious: Yes (Hospitalization)
  Sender: FDA-Public Use
  Company Number: US-EXELIXIS-XL18415005095

PATIENT
  Age: 61 Year
  Sex: Male

DRUGS (1)
  1. XL184 [Suspect]
     Active Substance: CABOZANTINIB
     Indication: THYROID CANCER
     Dosage: 60 MG, QD
     Route: 048
     Dates: start: 20140626, end: 20141017

REACTIONS (1)
  - Pleural effusion [Recovered/Resolved]

NARRATIVE: CASE EVENT DATE: 20141107
